FAERS Safety Report 25210407 (Version 1)
Quarter: 2025Q2

REPORT INFORMATION
  Report Type: Spontaneous
  Country: US (occurrence: US)
  Receive Date: 20250417
  Receipt Date: 20250417
  Transmission Date: 20250717
  Serious: Yes (Other)
  Sender: B BRAUN
  Company Number: US-B.Braun Medical Inc.-2175106

PATIENT
  Age: 24 Year
  Sex: Female
  Weight: 111.1 kg

DRUGS (1)
  1. BUPIVACAINE HYDROCHLORIDE [Suspect]
     Active Substance: BUPIVACAINE HYDROCHLORIDE
     Indication: Spinal anaesthesia

REACTIONS (3)
  - Drug ineffective [Unknown]
  - Anaesthetic complication [Unknown]
  - Maternal exposure during delivery [Unknown]
